FAERS Safety Report 8377414-0 (Version None)
Quarter: 2012Q2

REPORT INFORMATION
  Report Type: 
  Country: None (occurrence: None)
  Receive Date: 20120522
  Receipt Date: 20120510
  Transmission Date: 20120825
  Serious: Yes (Other)
  Sender: FDA-Public Use
  Company Number: US-ROCHE-1044819

PATIENT
  Sex: Female

DRUGS (1)
  1. ZELBORAF [Suspect]
     Indication: METASTATIC MALIGNANT MELANOMA
     Route: 048
     Dates: start: 20120111

REACTIONS (15)
  - VOMITING [None]
  - MYALGIA [None]
  - ARTHRALGIA [None]
  - OEDEMA PERIPHERAL [None]
  - SKIN PAPILLOMA [None]
  - JOINT SWELLING [None]
  - NEOPLASM [None]
  - MASS [None]
  - PHOTOSENSITIVITY REACTION [None]
  - NAUSEA [None]
  - SUNBURN [None]
  - LYMPHADENOPATHY [None]
  - PAPULE [None]
  - HEADACHE [None]
  - FATIGUE [None]
